FAERS Safety Report 9365256 (Version 1)
Quarter: 2013Q2

REPORT INFORMATION
  Report Type: Report from Study
  Country: CA (occurrence: CA)
  Receive Date: 20130625
  Receipt Date: 20130625
  Transmission Date: 20140414
  Serious: Yes (Hospitalization)
  Sender: FDA-Public Use
  Company Number: CA-ROCHE-1238987

PATIENT
  Sex: Male

DRUGS (3)
  1. PERJETA [Suspect]
     Indication: METASTATIC GASTRIC CANCER
     Route: 042
     Dates: start: 20130606
  2. HERCEPTIN [Suspect]
     Indication: METASTATIC GASTRIC CANCER
     Route: 065
  3. TAXOTERE [Suspect]
     Indication: METASTATIC GASTRIC CANCER
     Route: 065

REACTIONS (1)
  - Hepatic enzyme increased [Unknown]
